FAERS Safety Report 7037011-6 (Version None)
Quarter: 2010Q4

REPORT INFORMATION
  Report Type: 
  Country: None (occurrence: None)
  Receive Date: 20101011
  Receipt Date: 20100928
  Transmission Date: 20110411
  Serious: Yes (Hospitalization, Other)
  Sender: FDA-Public Use
  Company Number: FR-ELI_LILLY_AND_COMPANY-FR201009008209

PATIENT
  Sex: Female

DRUGS (4)
  1. ZYPREXA [Suspect]
     Indication: SCHIZOPHRENIA
     Dosage: 20 MG, DAILY (1/D)
     Route: 048
  2. TERCIAN [Concomitant]
     Dosage: 100 MG, DAILY (1/D)
     Route: 048
  3. TRIHEXYPHENIDYL HCL [Concomitant]
     Dosage: 5 MG, DAILY (1/D)
     Route: 048
  4. LOXAPAC [Concomitant]
     Dosage: 60 MG, DAILY (1/D)

REACTIONS (6)
  - AGITATION [None]
  - ALCOHOLISM [None]
  - ANXIETY [None]
  - CONVULSION [None]
  - HEPATOCELLULAR INJURY [None]
  - HYPONATRAEMIA [None]
